FAERS Safety Report 6356747-3 (Version None)
Quarter: 2009Q3

REPORT INFORMATION
  Report Type: 
  Country: None (occurrence: None)
  Receive Date: 20090914
  Receipt Date: 20090914
  Transmission Date: 20100115
  Serious: No
  Sender: FDA-Public Use
  Company Number: None

PATIENT
  Sex: Female

DRUGS (2)
  1. LYRICA [Suspect]
     Indication: PAIN
     Dates: start: 20090911
  2. LYRICA [Suspect]
     Indication: TRIGEMINAL NEURALGIA
     Dates: start: 20090911

REACTIONS (1)
  - TRIGEMINAL NEURALGIA [None]
